FAERS Safety Report 9838838 (Version 2)
Quarter: 2014Q3

REPORT INFORMATION
  Report Type: Spontaneous
  Country: US (occurrence: US)
  Receive Date: 20140123
  Receipt Date: 20140728
  Transmission Date: 20150326
  Serious: Yes (Hospitalization, Other)
  Sender: FDA-Public Use
  Company Number: US-009507513-1401USA010028

PATIENT
  Sex: Female
  Weight: 50.79 kg

DRUGS (2)
  1. NUVARING [Suspect]
     Active Substance: ETHINYL ESTRADIOL\ETONOGESTREL
     Indication: CONTRACEPTION
     Dosage: X3 WKS, REMOVE 1 WK, REPEAT
     Route: 067
     Dates: start: 20111005, end: 20120312
  2. NUVARING [Suspect]
     Active Substance: ETHINYL ESTRADIOL\ETONOGESTREL
     Dosage: UNK
     Route: 067

REACTIONS (9)
  - Multiple sclerosis [Unknown]
  - Benign breast neoplasm [Unknown]
  - Surgery [Unknown]
  - Mitral valve disease [Unknown]
  - Colitis ulcerative [Unknown]
  - Tricuspid valve incompetence [Unknown]
  - Papilloma viral infection [Unknown]
  - Mitral valve incompetence [Unknown]
  - Cerebrovascular accident [Recovering/Resolving]

NARRATIVE: CASE EVENT DATE: 2003
